FAERS Safety Report 6517164-6 (Version None)
Quarter: 2009Q4

REPORT INFORMATION
  Report Type: 
  Country: None (occurrence: None)
  Receive Date: 20091223
  Receipt Date: 20091215
  Transmission Date: 20100525
  Serious: No
  Sender: FDA-Public Use
  Company Number: A0832262A

PATIENT
  Age: 53 Year
  Sex: Female

DRUGS (2)
  1. RELENZA [Suspect]
     Indication: H1N1 INFLUENZA
     Dosage: 5MG TWICE PER DAY
     Route: 055
     Dates: start: 20091125, end: 20091130
  2. NO CONCURRENT MEDICATION [Concomitant]

REACTIONS (7)
  - COUGH [None]
  - DRUG INEFFECTIVE [None]
  - FEELING HOT [None]
  - H1N1 INFLUENZA [None]
  - ILL-DEFINED DISORDER [None]
  - NIGHT SWEATS [None]
  - PRODUCT QUALITY ISSUE [None]
